FAERS Safety Report 9384081 (Version 2)
Quarter: 2013Q3

REPORT INFORMATION
  Report Type: Spontaneous
  Country: AR (occurrence: AR)
  Receive Date: 20130705
  Receipt Date: 20130808
  Transmission Date: 20140515
  Serious: Yes (Hospitalization)
  Sender: FDA-Public Use
  Company Number: AR-AMGEN-ARGSP2013047084

PATIENT
  Age: 4 Year
  Sex: Female

DRUGS (1)
  1. ENBREL [Suspect]
     Indication: JUVENILE IDIOPATHIC ARTHRITIS
     Dosage: 12.5 MG, WEEKLY
     Route: 065
     Dates: start: 20110301, end: 201306

REACTIONS (4)
  - Joint stiffness [Unknown]
  - Pain [Unknown]
  - Juvenile idiopathic arthritis [Unknown]
  - Drug ineffective [Unknown]
